FAERS Safety Report 24692636 (Version 1)
Quarter: 2024Q4

REPORT INFORMATION
  Report Type: Spontaneous
  Country: CN (occurrence: CN)
  Receive Date: 20241203
  Receipt Date: 20241203
  Transmission Date: 20250115
  Serious: Yes (Other)
  Sender: FRESENIUS KABI
  Company Number: CN-FreseniusKabi-FK202417846

PATIENT
  Age: 33 Year
  Sex: Female
  Weight: 55 kg

DRUGS (4)
  1. PROPOFOL [Suspect]
     Active Substance: PROPOFOL
     Indication: Abortion induced complicated
     Dosage: FORM OF ADMIN-INJECTION
     Route: 041
     Dates: start: 20241030, end: 20241030
  2. PROPOFOL [Suspect]
     Active Substance: PROPOFOL
     Indication: Ectopic pregnancy
  3. PROPOFOL [Suspect]
     Active Substance: PROPOFOL
     Indication: Benign hydatidiform mole
  4. PROPOFOL [Suspect]
     Active Substance: PROPOFOL
     Indication: Induction of anaesthesia

REACTIONS (1)
  - Anaphylactic shock [Recovered/Resolved]

NARRATIVE: CASE EVENT DATE: 20241030
